FAERS Safety Report 4654274-2 (Version None)
Quarter: 2005Q2

REPORT INFORMATION
  Report Type: 
  Country: None (occurrence: None)
  Receive Date: 20050404
  Receipt Date: 20050110
  Transmission Date: 20051028
  Serious: No
  Sender: FDA-Public Use
  Company Number: USA041285748

PATIENT
  Age: 58 Year
  Sex: Female

DRUGS (2)
  1. CYMBALTA [Suspect]
     Indication: MOOD ALTERED
     Dosage: 60 MG
     Dates: start: 20041123, end: 20041123
  2. PREMARIN [Concomitant]

REACTIONS (9)
  - BACK PAIN [None]
  - DIARRHOEA [None]
  - DYSPNOEA [None]
  - EYE SWELLING [None]
  - HEADACHE [None]
  - HOT FLUSH [None]
  - PRURITUS [None]
  - VISION BLURRED [None]
  - VOMITING [None]
